FAERS Safety Report 10157847 (Version 2)
Quarter: 2014Q2

REPORT INFORMATION
  Report Type: Report from Study
  Country: BR (occurrence: BR)
  Receive Date: 20140507
  Receipt Date: 20140507
  Transmission Date: 20141212
  Serious: Yes (Other)
  Sender: FDA-Public Use
  Company Number: PHHY2014BR023899

PATIENT
  Sex: Female

DRUGS (2)
  1. RASILEZ [Suspect]
     Indication: HYPERTENSION
     Dosage: 1 DF (150MG), QD (IN THE MORNING)
     Route: 048
  2. RASILEZ [Suspect]
     Dosage: 1 DF (300 MG), QD (IN THE MORNING)
     Route: 048
     Dates: end: 20140225

REACTIONS (6)
  - Hepatic steatosis [Recovered/Resolved]
  - Blood pressure fluctuation [Unknown]
  - Somnolence [Recovered/Resolved]
  - Myalgia [Recovered/Resolved]
  - Psychiatric symptom [Recovered/Resolved]
  - Drug ineffective [Unknown]
